FAERS Safety Report 5588975-9 (Version None)
Quarter: 2008Q1

REPORT INFORMATION
  Report Type: 
  Country: None (occurrence: None)
  Receive Date: 20080111
  Receipt Date: 20071231
  Transmission Date: 20080703
  Serious: Yes (Death)
  Sender: FDA-Public Use
  Company Number: US-MERCK-0801USA00228

PATIENT
  Age: 46 Year
  Sex: Male

DRUGS (4)
  1. ZOCOR [Suspect]
     Route: 048
  2. BUSPIRONE HYDROCHLORIDE [Suspect]
     Route: 048
  3. PAROXETINE [Suspect]
     Route: 048
  4. METHADONE HYDROCHLORIDE [Suspect]
     Route: 048

REACTIONS (2)
  - DRUG TOXICITY [None]
  - OVERDOSE [None]
